FAERS Safety Report 6464236-0 (Version None)
Quarter: 2009Q4

REPORT INFORMATION
  Report Type: 
  Country: None (occurrence: None)
  Receive Date: 20091201
  Receipt Date: 20091126
  Transmission Date: 20100525
  Serious: Yes (Death, Hospitalization, Other)
  Sender: FDA-Public Use
  Company Number: PHHO2009IT13689

PATIENT
  Sex: Female

DRUGS (3)
  1. AFINITOR [Suspect]
     Indication: NEUROENDOCRINE TUMOUR
     Dosage: 10MG
     Route: 048
     Dates: start: 20090811, end: 20090827
  2. AFINITOR [Suspect]
     Dosage: NO TREATMENT
     Dates: start: 20090828, end: 20090913
  3. AFINITOR [Suspect]
     Dosage: 5MG
     Dates: start: 20090914, end: 20091020

REACTIONS (11)
  - ANAEMIA [None]
  - ASTHENIA [None]
  - DEATH [None]
  - DIARRHOEA [None]
  - DYSPNOEA [None]
  - MOUTH ULCERATION [None]
  - PERICARDIAL EFFUSION [None]
  - PLEURAL EFFUSION [None]
  - PNEUMONITIS [None]
  - PYREXIA [None]
  - THROMBOCYTOPENIA [None]
